FAERS Safety Report 6015054-9 (Version None)
Quarter: 2008Q4

REPORT INFORMATION
  Report Type: 
  Country: None (occurrence: None)
  Receive Date: 20081222
  Receipt Date: 20081215
  Transmission Date: 20090506
  Serious: Yes (Hospitalization)
  Sender: FDA-Public Use
  Company Number: BR-BAYER-200817240LA

PATIENT
  Age: 31 Year
  Sex: Female

DRUGS (6)
  1. BETAFERON [Suspect]
     Indication: RELAPSING-REMITTING MULTIPLE SCLEROSIS
     Route: 058
     Dates: start: 20050101, end: 20080801
  2. BETAFERON [Suspect]
     Route: 058
     Dates: start: 20081101
  3. HIDANTAL [Concomitant]
     Indication: CONVULSION
     Dosage: TOTAL DAILY DOSE: 100 MG  UNIT DOSE: 100 MG
     Route: 048
     Dates: start: 20030101
  4. ARTANE [Concomitant]
     Indication: TREMOR
     Dosage: AS USED: 2 MG  UNIT DOSE: 2 MG
     Route: 048
     Dates: start: 20030101
  5. ALPRAZOLAM [Concomitant]
     Indication: ANXIOLYTIC THERAPY
     Dosage: TOTAL DAILY DOSE: 0.5 MG  UNIT DOSE: 0.5 MG
     Route: 048
     Dates: start: 20030101
  6. PONDERA [Concomitant]
     Indication: ANTIDEPRESSANT THERAPY
     Dosage: TOTAL DAILY DOSE: 20 MG  UNIT DOSE: 20 MG
     Route: 048
     Dates: start: 20030101

REACTIONS (4)
  - ABDOMINAL PAIN [None]
  - ABDOMINAL WALL INFECTION [None]
  - ASTHENIA [None]
  - INJECTION SITE ABSCESS [None]
